FAERS Safety Report 18534508 (Version 2)
Quarter: 2020Q4

REPORT INFORMATION
  Report Type: Report from Study
  Country: US (occurrence: US)
  Receive Date: 20201123
  Receipt Date: 20201124
  Transmission Date: 20210114
  Serious: Yes (Other)
  Sender: FDA-Public Use
  Company Number: US-MYLANLABS-2020M1094516

PATIENT
  Sex: Female
  Weight: 60 kg

DRUGS (1)
  1. GLATIRAMER ACETATE INJECTION [Suspect]
     Active Substance: GLATIRAMER ACETATE
     Indication: RELAPSING-REMITTING MULTIPLE SCLEROSIS
     Dosage: 40 MILLIGRAM, 3XW THREE TIMES PER WEEK
     Route: 058
     Dates: start: 202010, end: 20201103

REACTIONS (3)
  - Drug ineffective [Unknown]
  - Balance disorder [Unknown]
  - Product intolerance [Unknown]
